FAERS Safety Report 18103161 (Version 2)
Quarter: 2020Q3

REPORT INFORMATION
  Report Type: Spontaneous
  Country: US (occurrence: US)
  Receive Date: 20200803
  Receipt Date: 20200918
  Transmission Date: 20201103
  Serious: No
  Sender: FDA-Public Use
  Company Number: US-BEH-2020120782

PATIENT
  Age: 61 Year
  Weight: 54.42 kg

DRUGS (2)
  1. HIZENTRA [Suspect]
     Active Substance: HUMAN IMMUNOGLOBULIN G
     Indication: HYPOGAMMAGLOBULINAEMIA
     Dosage: 6 GRAM, QW
     Route: 058
     Dates: start: 201810
  2. SODIUM [Concomitant]
     Active Substance: SODIUM

REACTIONS (4)
  - Pruritus [Recovered/Resolved]
  - Infusion site swelling [Unknown]
  - Infusion site swelling [Recovered/Resolved]
  - Pruritus [Unknown]

NARRATIVE: CASE EVENT DATE: 202008
